FAERS Safety Report 15430107 (Version 1)
Quarter: 2018Q3

REPORT INFORMATION
  Report Type: Report from Study
  Country: US (occurrence: US)
  Receive Date: 20180926
  Receipt Date: 20180926
  Transmission Date: 20181010
  Serious: Yes (Hospitalization)
  Sender: FDA-Public Use
  Company Number: US-ADAMAS PHARMA, LLC-2018ADA02280

PATIENT
  Sex: Female

DRUGS (15)
  1. CYCLOSPORINE. [Concomitant]
     Active Substance: CYCLOSPORINE
  2. XOLAIR [Concomitant]
     Active Substance: OMALIZUMAB
  3. GABAPENTIN. [Concomitant]
     Active Substance: GABAPENTIN
  4. OXYBUTYNIN. [Concomitant]
     Active Substance: OXYBUTYNIN CHLORIDE
  5. SODIUM BICAR [Concomitant]
  6. VIT D3/VIT C [Concomitant]
  7. EYE LUBRICAN OIN OP [Concomitant]
  8. ZOFRAN [Concomitant]
     Active Substance: ONDANSETRON HYDROCHLORIDE
  9. GOCOVRI [Suspect]
     Active Substance: AMANTADINE
     Indication: DYSKINESIA
     Dosage: 274 MG, 1X/DAY AT BEDTIME
     Route: 048
     Dates: start: 20180720
  10. VOLTAREN [Concomitant]
     Active Substance: DICLOFENAC SODIUM
  11. CARB/LEVO [Concomitant]
     Active Substance: CARBIDOPA\LEVODOPA
  12. VIT B12/FA [Concomitant]
  13. BOOST LIQ CHOC/MLT [Concomitant]
  14. CALCIUM [Concomitant]
     Active Substance: CALCIUM
  15. MAGNESIUM [Concomitant]
     Active Substance: MAGNESIUM

REACTIONS (3)
  - Agitation [Recovered/Resolved]
  - Constipation [Unknown]
  - Drug dose omission [Recovered/Resolved]

NARRATIVE: CASE EVENT DATE: 2018
